FAERS Safety Report 4639968-7 (Version None)
Quarter: 2005Q2

REPORT INFORMATION
  Report Type: 
  Country: None (occurrence: None)
  Receive Date: 20050328
  Receipt Date: 20050205
  Transmission Date: 20051028
  Serious: No
  Sender: FDA-Public Use
  Company Number: USA050187626

PATIENT
  Age: 5 Year
  Sex: Male
  Weight: 20 kg

DRUGS (1)
  1. STRATTERA [Suspect]
     Indication: ATTENTION DEFICIT/HYPERACTIVITY DISORDER
     Dosage: 40 MG DAY
     Dates: start: 20050605

REACTIONS (9)
  - ANOREXIA [None]
  - COMMUNICATION DISORDER [None]
  - CONSTIPATION [None]
  - HEART RATE INCREASED [None]
  - INDIFFERENCE [None]
  - MYDRIASIS [None]
  - PRESCRIBED OVERDOSE [None]
  - SOCIAL AVOIDANT BEHAVIOUR [None]
  - SOMNOLENCE [None]
